FAERS Safety Report 5024187-5 (Version None)
Quarter: 2006Q2

REPORT INFORMATION
  Report Type: 
  Country: None (occurrence: None)
  Receive Date: 20060607
  Receipt Date: 20060522
  Transmission Date: 20061013
  Serious: Yes (Hospitalization, Other)
  Sender: FDA-Public Use
  Company Number: GBR-2002-0000389

PATIENT
  Age: 68 Year
  Sex: Male

DRUGS (3)
  1. THEOPHYLLINE [Suspect]
     Indication: CHRONIC OBSTRUCTIVE PULMONARY DISEASE
     Dosage: 400 MG, BID, ORAL
     Route: 048
     Dates: end: 19990225
  2. CIPROFLOXACIN [Suspect]
     Indication: LOWER RESPIRATORY TRACT INFECTION
     Dosage: 500 MG, BID, ORAL
     Route: 048
  3. ASPIRIN [Concomitant]

REACTIONS (13)
  - AGITATION [None]
  - ANXIETY [None]
  - DEPRESSION [None]
  - DRUG INTERACTION [None]
  - DRUG LEVEL INCREASED [None]
  - DRUG TOXICITY [None]
  - DYSPNOEA [None]
  - PRODUCTIVE COUGH [None]
  - RESTLESSNESS [None]
  - SINUS TACHYCARDIA [None]
  - SPUTUM PURULENT [None]
  - SUICIDAL IDEATION [None]
  - SUPRAVENTRICULAR EXTRASYSTOLES [None]
